FAERS Safety Report 4471404-6 (Version None)
Quarter: 2004Q4

REPORT INFORMATION
  Report Type: 
  Country: None (occurrence: None)
  Receive Date: 20041007
  Receipt Date: 20040926
  Transmission Date: 20050328
  Serious: Yes (Hospitalization)
  Sender: FDA-Public Use
  Company Number: 2004069835

PATIENT
  Age: 34 Year
  Sex: Female

DRUGS (1)
  1. UNISOM [Suspect]
     Dosage: 32 TABLETS ONCE, ORAL
     Route: 048
     Dates: start: 20040926, end: 20040926

REACTIONS (6)
  - CONFUSIONAL STATE [None]
  - DISTURBANCE IN ATTENTION [None]
  - MYDRIASIS [None]
  - OVERDOSE [None]
  - TREMOR [None]
  - VOMITING [None]
